FAERS Safety Report 4555237-8 (Version None)
Quarter: 2004Q4

REPORT INFORMATION
  Report Type: 
  Country: None (occurrence: None)
  Receive Date: 20041217
  Receipt Date: 20040830
  Transmission Date: 20050328
  Serious: No
  Sender: FDA-Public Use
  Company Number: 2004-BP-07475BP

PATIENT
  Age: 71 Year
  Sex: Male

DRUGS (11)
  1. SPIRIVA [Suspect]
     Dosage: 18 MCG (18 MCG), IH
     Route: 055
     Dates: start: 20040614
  2. SPIRIVA [Suspect]
  3. FORADIL [Concomitant]
  4. ADVAIR (SERETIDE MITE) [Concomitant]
  5. CARDURA [Concomitant]
  6. LASIX [Concomitant]
  7. ACETYLSALICYLIC ACID SRT [Concomitant]
  8. POTASSIUM [Concomitant]
  9. ZOCOR [Concomitant]
  10. NEURONTIN [Concomitant]
  11. INSULIN [Concomitant]

REACTIONS (3)
  - ANGIONEUROTIC OEDEMA [None]
  - ASTHENIA [None]
  - DYSPNOEA EXACERBATED [None]
